FAERS Safety Report 14199713 (Version 2)
Quarter: 2018Q1

REPORT INFORMATION
  Report Type: Spontaneous
  Country: US (occurrence: US)
  Receive Date: 20171117
  Receipt Date: 20180306
  Transmission Date: 20180508
  Serious: Yes (Other)
  Sender: FDA-Public Use
  Company Number: US-ENDO PHARMACEUTICALS INC-2017-006020

PATIENT
  Age: 3 Year
  Sex: Female

DRUGS (3)
  1. PREDNISOLONE ORAL SOLUTION 15MG/5ML [Suspect]
     Active Substance: PREDNISOLONE
     Indication: CROUP INFECTIOUS
     Dosage: 5ML,OD
     Dates: start: 20171101, end: 20171101
  2. CHILDRENS ZYRTEC [Concomitant]
     Active Substance: CETIRIZINE HYDROCHLORIDE
     Indication: SEASONAL ALLERGY
     Dosage: UNK UNK, UNKNOWN
     Route: 065
  3. PREDNISOLONE ORAL SOLUTION 15MG/5ML [Suspect]
     Active Substance: PREDNISOLONE
     Dosage: 2 ML,OD
     Route: 048
     Dates: start: 20171101, end: 20171101

REACTIONS (7)
  - Swollen tongue [Recovered/Resolved]
  - Vomiting [Recovered/Resolved]
  - Extra dose administered [Unknown]
  - Wrong technique in product usage process [Unknown]
  - Off label use [Recovered/Resolved]
  - Product taste abnormal [Unknown]
  - Dysphagia [Recovered/Resolved]

NARRATIVE: CASE EVENT DATE: 20171101
